FAERS Safety Report 12925059 (Version 1)
Quarter: 2016Q4

REPORT INFORMATION
  Report Type: Spontaneous
  Country: US (occurrence: US)
  Receive Date: 20161109
  Receipt Date: 20161109
  Transmission Date: 20170207
  Serious: No
  Sender: FDA-Public Use
  Company Number: US-PFIZER INC-2016517617

PATIENT
  Age: 78 Year
  Sex: Female
  Weight: 58.97 kg

DRUGS (1)
  1. GABAPENTIN. [Suspect]
     Active Substance: GABAPENTIN
     Indication: PAIN
     Dosage: 600 MG, 2X/DAY(300 MG 2 CAPSULES IN THE MORNING AND 2 CAPSULES AT NIGHT)

REACTIONS (3)
  - Dysphagia [Unknown]
  - Product difficult to swallow [Unknown]
  - Product use issue [Unknown]
